FAERS Safety Report 7900139-X (Version None)
Quarter: 2011Q4

REPORT INFORMATION
  Report Type: 
  Country: None (occurrence: None)
  Receive Date: 20111108
  Receipt Date: 20111026
  Transmission Date: 20120403
  Serious: No
  Sender: FDA-Public Use
  Company Number: US-BIOGENIDEC-2011BI041206

PATIENT
  Sex: Female

DRUGS (3)
  1. AVONEX [Concomitant]
     Indication: MULTIPLE SCLEROSIS
     Route: 030
     Dates: start: 20090328
  2. TYSABRI [Suspect]
     Indication: MULTIPLE SCLEROSIS
     Route: 042
     Dates: start: 20101209
  3. TYSABRI [Suspect]
     Route: 042
     Dates: start: 20071219, end: 20081001

REACTIONS (6)
  - BURNING SENSATION [None]
  - MENTAL STATUS CHANGES [None]
  - MULTIPLE SCLEROSIS [None]
  - SLUGGISHNESS [None]
  - PAIN [None]
  - SENSITISATION [None]
